FAERS Safety Report 9669829 (Version 1)
Quarter: 2013Q4

REPORT INFORMATION
  Report Type: Spontaneous
  Country: US (occurrence: None)
  Receive Date: 20131104
  Receipt Date: 20131104
  Transmission Date: 20140711
  Serious: No
  Sender: FDA-Public Use
  Company Number: None

PATIENT
  Age: 48 Year
  Sex: Male

DRUGS (1)
  1. RIBAVRIN TABLETS [Suspect]
     Indication: HEPATITIS C
     Route: 048
     Dates: start: 20130625

REACTIONS (2)
  - Dry mouth [None]
  - Tooth fracture [None]
